FAERS Safety Report 14030263 (Version 9)
Quarter: 2018Q2

REPORT INFORMATION
  Report Type: Spontaneous
  Country: US (occurrence: US)
  Receive Date: 20171001
  Receipt Date: 20180416
  Transmission Date: 20180711
  Serious: Yes (Hospitalization, Other)
  Sender: FDA-Public Use
  Company Number: US-BEH-2017083876

PATIENT
  Age: 68 Year
  Sex: Male
  Weight: 124.72 kg

DRUGS (6)
  1. HAEGARDA [Suspect]
     Active Substance: HUMAN C1-ESTERASE INHIBITOR
     Indication: HEREDITARY ANGIOEDEMA
  2. ELIQUIS [Concomitant]
     Active Substance: APIXABAN
  3. HAEGARDA [Suspect]
     Active Substance: HUMAN C1-ESTERASE INHIBITOR
     Indication: HEREDITARY ANGIOEDEMA
     Dosage: 6000 IU, TWICE A WEEK (EVERY 3-4 DAYS)
     Route: 058
     Dates: start: 20120120, end: 2017
  4. CEFDINIR. [Concomitant]
     Active Substance: CEFDINIR
  5. GABAPENTIN. [Concomitant]
     Active Substance: GABAPENTIN
  6. HAEGARDA [Suspect]
     Active Substance: HUMAN C1-ESTERASE INHIBITOR
     Indication: PROPHYLAXIS

REACTIONS (6)
  - Vomiting [Recovering/Resolving]
  - Cerebrovascular accident [Unknown]
  - Loss of consciousness [Recovering/Resolving]
  - Hypotonia [Unknown]
  - Aphasia [Unknown]
  - Thrombosis [Recovering/Resolving]

NARRATIVE: CASE EVENT DATE: 2017
